FAERS Safety Report 10429565 (Version 1)
Quarter: 2014Q3

REPORT INFORMATION
  Report Type: Spontaneous
  Country: US (occurrence: None)
  Receive Date: 20140801
  Receipt Date: 20140801
  Transmission Date: 20150326
  Serious: Yes (Other)
  Sender: FDA-Public Use
  Company Number: AEUSA201300305

PATIENT
  Age: 33 Year
  Sex: Female
  Weight: 57.27 kg

DRUGS (20)
  1. DIPHENHHYDRAMINE [Concomitant]
  2. CHAMOMILE /00512601/ [Concomitant]
  3. XANAX [Concomitant]
     Active Substance: ALPRAZOLAM
  4. GAMUNEX-C [Suspect]
     Active Substance: HUMAN IMMUNOGLOBULIN G
     Indication: CHRONIC INFLAMMATORY DEMYELINATING POLYRADICULONEUROPATHY
     Route: 042
     Dates: start: 20130702
  5. SODIUM [Concomitant]
     Active Substance: SODIUM
  6. LOVENOX [Concomitant]
     Active Substance: ENOXAPARIN SODIUM
  7. EPINEPHRINE. [Concomitant]
     Active Substance: EPINEPHRINE
  8. VITAMIN B12 /06860901/ [Concomitant]
  9. IMITREX [Concomitant]
     Active Substance: SUMATRIPTAN\SUMATRIPTAN SUCCINATE
  10. MELATONIN? [Concomitant]
  11. AMBIEN [Concomitant]
     Active Substance: ZOLPIDEM TARTRATE
  12. LOESTRIN NOS [Concomitant]
     Active Substance: ETHINYL ESTRADIOL\NORETHINDRONE ACETATE
  13. VALIUM /00266901/ [Concomitant]
  14. PARACETAMOL [Concomitant]
     Active Substance: ACETAMINOPHEN
  15. FOLIC ACID. [Concomitant]
     Active Substance: FOLIC ACID
  16. HYDROCODONE [Concomitant]
     Active Substance: HYDROCODONE
  17. VALERIAN ROOT [Concomitant]
     Active Substance: VALERIAN
  18. WELLBUTRIN [Concomitant]
     Active Substance: BUPROPION HYDROCHLORIDE
  19. GAMUNEX-C [Concomitant]
     Active Substance: HUMAN IMMUNOGLOBULIN G
  20. SOMA [Concomitant]
     Active Substance: CARISOPRODOL

REACTIONS (2)
  - Headache [None]
  - Meningitis aseptic [None]

NARRATIVE: CASE EVENT DATE: 20130806
